FAERS Safety Report 4565828-6 (Version None)
Quarter: 2005Q1

REPORT INFORMATION
  Report Type: 
  Country: None (occurrence: None)
  Receive Date: 20050128
  Receipt Date: 20050112
  Transmission Date: 20050727
  Serious: Yes (Hospitalization)
  Sender: FDA-Public Use
  Company Number: DSA_25027_2004

PATIENT
  Age: 78 Year
  Sex: Female

DRUGS (11)
  1. TEMESTA [Suspect]
     Dosage: 1 MG Q DAY PO
     Route: 048
  2. MONO-TILDIEM - SLOW RELEASE [Suspect]
     Indication: ANGINA PECTORIS
     Dosage: 300 MG Q DAY PO
     Route: 048
  3. MONO-TILDIEM - SLOW RELEASE [Suspect]
     Indication: HYPERTENSION
     Dosage: 300 MG Q DAY PO
     Route: 048
  4. ISOCARD [Suspect]
     Indication: ANGINA PECTORIS
  5. ISOCARD [Suspect]
     Indication: HYPERTENSION
  6. CELUPRANE [Suspect]
  7. ACETAMINOPHEN [Suspect]
     Indication: ANGINA PECTORIS
     Dosage: 75 MG Q DAY PO
     Route: 048
  8. OGAST [Suspect]
  9. RAMIPRIL [Suspect]
     Indication: ANGINA PECTORIS
     Dosage: 2.5 MG Q DAY PO
     Route: 048
     Dates: start: 20040525, end: 20041112
  10. RAMIPRIL [Suspect]
     Indication: HYPERTENSION
     Dosage: 2.5 MG Q DAY PO
     Route: 048
     Dates: start: 20040525, end: 20041112
  11. AMILORIDE HCL W/HYDROCHLOROTHIAZIDE [Concomitant]

REACTIONS (9)
  - CONDITION AGGRAVATED [None]
  - DISEASE RECURRENCE [None]
  - DRUG INEFFECTIVE [None]
  - HYPERKERATOSIS [None]
  - LICHEN PLANUS [None]
  - ONYCHOLYSIS [None]
  - PSORIASIS [None]
  - RASH ERYTHEMATOUS [None]
  - STOMATITIS [None]
